FAERS Safety Report 9174610 (Version 1)
Quarter: 2013Q1

REPORT INFORMATION
  Report Type: Spontaneous
  Country: US (occurrence: US)
  Receive Date: 20130320
  Receipt Date: 20130320
  Transmission Date: 20140127
  Serious: Yes (Life-Threatening, Hospitalization)
  Sender: FDA-Public Use
  Company Number: US-SHIRE-ALL1-2013-01615

PATIENT
  Age: 58 None
  Sex: Female
  Weight: 47.44 kg

DRUGS (3)
  1. LIALDA [Suspect]
     Indication: COLITIS ULCERATIVE
     Dosage: 2.4G (TWO 1.2 G), 2X/DAY:BID
     Route: 048
     Dates: start: 201111, end: 2012
  2. LIALDA [Suspect]
     Dosage: 1.2 G, 2X/DAY:BID
     Route: 048
     Dates: start: 2012
  3. URSODIOL [Concomitant]
     Indication: CHOLANGITIS SCLEROSING
     Dosage: 250 MG, 2X/DAY:BID
     Route: 048

REACTIONS (5)
  - Hepatic failure [Recovered/Resolved]
  - Ascites [Recovered/Resolved]
  - Gastrointestinal infection [Recovered/Resolved]
  - Alopecia [Not Recovered/Not Resolved]
  - Inappropriate schedule of drug administration [Not Recovered/Not Resolved]
